FAERS Safety Report 6288602-1 (Version None)
Quarter: 2009Q3

REPORT INFORMATION
  Report Type: 
  Country: None (occurrence: None)
  Receive Date: 20090727
  Receipt Date: 20060106
  Transmission Date: 20100115
  Serious: Yes (Life-Threatening)
  Sender: FDA-Public Use
  Company Number: FR-GUERBET-20060006

PATIENT
  Age: 47 Year
  Sex: Male
  Weight: 24.9478 kg

DRUGS (10)
  1. HEXABRIX [Suspect]
     Indication: ARTERIOGRAM CORONARY
     Dosage: INTRA-ARTERIAL
     Route: 013
     Dates: start: 20051201, end: 20051201
  2. ISOSORBIDE DINITRATE [Suspect]
     Dosage: 1, MG MILLIGRAM(S), 1, 1, TOTAL INTRA-ARTERIAL
     Route: 013
     Dates: start: 20051201, end: 20051201
  3. GELOFUSINE: / GELATIN [Suspect]
     Dosage: INTRAVENOUS
     Route: 042
     Dates: start: 20051201, end: 20051201
  4. HEPARIN CALCIUM [Concomitant]
  5. KARDEGIC: / LYSINE ACETYLSALICYLATE [Concomitant]
  6. PRAVASTATIN [Concomitant]
  7. RENAGEL [Concomitant]
  8. CALCIDIA: / CALCIUM CARBONATE [Concomitant]
  9. PLAVIX [Concomitant]
  10. SELOKEN 25: / METOPROLOL [Concomitant]

REACTIONS (1)
  - ANAPHYLACTIC SHOCK [None]
